FAERS Safety Report 7624219-1 (Version None)
Quarter: 2011Q3

REPORT INFORMATION
  Report Type: 
  Country: None (occurrence: None)
  Receive Date: 20110720
  Receipt Date: 20110720
  Transmission Date: 20111222
  Serious: Yes (Life-Threatening, Hospitalization)
  Sender: FDA-Public Use
  Company Number: None

PATIENT
  Age: 44 Year
  Sex: Male
  Weight: 125.19 kg

DRUGS (2)
  1. BONE TISSUE HUMAN [Concomitant]
  2. RHBMP MORPHOGENETIC PROTEIN [Suspect]
     Indication: BONE GRAFT
     Dosage: CERVICAL SPINE OPERATION
     Route: 005
     Dates: start: 20020715, end: 20020715

REACTIONS (3)
  - INFECTION [None]
  - COMA [None]
  - MENINGITIS [None]
